FAERS Safety Report 12547138 (Version 1)
Quarter: 2016Q3

REPORT INFORMATION
  Report Type: Report from Study
  Country: US (occurrence: US)
  Receive Date: 20160711
  Receipt Date: 20160711
  Transmission Date: 20161109
  Serious: Yes (Hospitalization)
  Sender: FDA-Public Use
  Company Number: PHHO2015US017231

PATIENT
  Age: 69 Year
  Sex: Male
  Weight: 77.5 kg

DRUGS (5)
  1. PREGABALIN. [Concomitant]
     Active Substance: PREGABALIN
     Indication: NEUROPATHY PERIPHERAL
     Dosage: 25 MG, BID
     Route: 048
     Dates: start: 20150528
  2. LIDOCAINE HCL [Concomitant]
     Active Substance: LIDOCAINE HYDROCHLORIDE
     Indication: LOCAL ANAESTHESIA
     Dosage: 20 MEGAUNITS, ONCE/SINGLE
     Route: 042
     Dates: start: 20150603, end: 20150603
  3. POLYVINYL ALCOHOL W/POVIDONE [Concomitant]
     Indication: DRY EYE
     Dosage: 1 DRP, Q8H
     Route: 047
     Dates: start: 20150602
  4. DABRAFENIB [Suspect]
     Active Substance: DABRAFENIB
     Indication: NEOPLASM MALIGNANT
     Dosage: 300 MG
     Route: 048
     Dates: start: 20141030
  5. TRAMETINIB [Suspect]
     Active Substance: TRAMETINIB
     Indication: NEOPLASM MALIGNANT
     Dosage: 2 MG
     Route: 048
     Dates: start: 20141030

REACTIONS (2)
  - Facial nerve disorder [Recovered/Resolved]
  - Facial nerve disorder [Recovered/Resolved]

NARRATIVE: CASE EVENT DATE: 20150526
